FAERS Safety Report 8605145-8 (Version None)
Quarter: 2012Q3

REPORT INFORMATION
  Report Type: 
  Country: None (occurrence: None)
  Receive Date: 20120820
  Receipt Date: 20120816
  Transmission Date: 20120928
  Serious: Yes (Other)
  Sender: FDA-Public Use
  Company Number: JP-PFIZER INC-2012185795

PATIENT
  Age: 69 Year
  Sex: Female

DRUGS (3)
  1. JUMI-HAIDOKU-TO [Suspect]
     Dosage: 350MG DAILY
     Route: 048
     Dates: start: 20120201
  2. KAKKONTOU [Suspect]
     Dosage: UNK
     Route: 048
  3. CELEBREX [Suspect]
     Indication: BACK PAIN
     Dosage: 200MG DAILY
     Route: 048
     Dates: start: 20120201

REACTIONS (1)
  - HYPOACUSIS [None]
